FAERS Safety Report 19235189 (Version 1)
Quarter: 2021Q2

REPORT INFORMATION
  Report Type: Spontaneous
  Country: US (occurrence: US)
  Receive Date: 20210509
  Receipt Date: 20210509
  Transmission Date: 20210717
  Serious: No
  Sender: FDA-Public Use
  Company Number: US-AMGEN-USASP2021068043

PATIENT
  Age: 29 Year
  Sex: Female

DRUGS (7)
  1. PHENTERMINE. [Concomitant]
     Active Substance: PHENTERMINE
     Dosage: 37.5 MILLIGRAM
  2. VITAMIN D3 [Concomitant]
     Active Substance: CHOLECALCIFEROL
     Dosage: 50000 UNIT
  3. ACYCLOVIR [ACICLOVIR] [Concomitant]
     Active Substance: ACYCLOVIR
     Dosage: 400 MILLIGRAM
  4. IBUPROFEN. [Concomitant]
     Active Substance: IBUPROFEN
     Dosage: UNK
  5. PENICILLIN VK [Concomitant]
     Active Substance: PENICILLIN V POTASSIUM
     Dosage: UNK
  6. OTEZLA [Suspect]
     Active Substance: APREMILAST
     Indication: PSORIASIS
     Dosage: 30 MILLIGRAM, BID
     Route: 048
     Dates: start: 20210312
  7. HYDROCORTISON [HYDROCORTISONE ACETATE] [Concomitant]
     Dosage: UNK PERCENT

REACTIONS (3)
  - Dizziness [Not Recovered/Not Resolved]
  - Product dose omission issue [Unknown]
  - Psoriasis [Not Recovered/Not Resolved]

NARRATIVE: CASE EVENT DATE: 202104
